FAERS Safety Report 4284748-8 (Version None)
Quarter: 2004Q1

REPORT INFORMATION
  Report Type: 
  Country: None (occurrence: None)
  Receive Date: 20040130
  Receipt Date: 20040122
  Transmission Date: 20041129
  Serious: Yes (Hospitalization, Other)
  Sender: FDA-Public Use
  Company Number: HQWYE541123JAN04

PATIENT
  Age: 7 Year
  Sex: Female

DRUGS (4)
  1. CHILDREN'S ADVIL [Suspect]
     Indication: PYREXIA
     Dosage: ORAL
     Route: 048
     Dates: start: 20001230, end: 20001230
  2. SURGAM (TIAPROFENIC ACID) [Suspect]
     Dosage: ORAL
     Route: 048
     Dates: start: 20001228, end: 20001230
  3. ACETAMINOPHEN [Concomitant]
  4. AUGMENTIN '500' [Concomitant]

REACTIONS (3)
  - CELLULITIS [None]
  - LYMPHADENOPATHY [None]
  - PYREXIA [None]
